FAERS Safety Report 12681546 (Version 2)
Quarter: 2016Q3

REPORT INFORMATION
  Report Type: Spontaneous
  Country: JP (occurrence: JP)
  Receive Date: 20160824
  Receipt Date: 20160914
  Transmission Date: 20161109
  Serious: Yes (Other)
  Sender: FDA-Public Use
  Company Number: JP-SA-2016SA153425

PATIENT
  Age: 77 Year
  Sex: Male
  Weight: 73 kg

DRUGS (9)
  1. EPALRESTAT [Concomitant]
     Active Substance: EPALRESTAT
     Dosage: 3 TABLETS IN 3 DIVIDED DOSES BEFORE EACH MEAL
  2. MOSAPRIDE CITRATE [Concomitant]
     Active Substance: MOSAPRIDE CITRATE
     Dosage: 3 TABLETS IN 3 DIVIDED DOSES AFTER EACH MEAL
  3. INSULIN GLARGINE [Suspect]
     Active Substance: INSULIN GLARGINE
     Indication: TYPE 1 DIABETES MELLITUS
     Dosage: BRAEKFAST - 12-13U, EVENING-6-8U
     Route: 065
  4. INSULIN ASPART [Suspect]
     Active Substance: INSULIN ASPART
     Indication: TYPE 1 DIABETES MELLITUS
     Dosage: BEFORE EACH MEAL (BREAKFAST-16U,LUNCH-9U,DINNER-7U)
     Route: 065
  5. SENNOSIDE [Concomitant]
     Active Substance: SENNOSIDES
  6. INSULIN GLARGINE [Suspect]
     Active Substance: INSULIN GLARGINE
     Indication: TYPE 1 DIABETES MELLITUS
     Dosage: BRAEKFAST - 15U, DINNER-11U
     Route: 065
  7. VALSARTAN. [Concomitant]
     Active Substance: VALSARTAN
     Dosage: 40 MG IN 2 DIVIDED DOSES
  8. INSULIN ASPART [Suspect]
     Active Substance: INSULIN ASPART
     Indication: TYPE 1 DIABETES MELLITUS
     Dosage: BEFORE EACH MEAL (BREAKFAST-14U,LUNCH-4U,DINNER5-7U)
     Route: 065
  9. LEVOTHYROXINE SODIUM. [Concomitant]
     Active Substance: LEVOTHYROXINE SODIUM
     Dosage: 2 TABLETS IN A SINGLE DOSE

REACTIONS (6)
  - Electrocardiogram QT prolonged [Unknown]
  - Autonomic nervous system imbalance [Unknown]
  - Hypoglycaemia [Unknown]
  - Sinus tachycardia [Unknown]
  - Autonomic neuropathy [Unknown]
  - Ventricular extrasystoles [Unknown]
